FAERS Safety Report 25076853 (Version 3)
Quarter: 2025Q3

REPORT INFORMATION
  Report Type: Report from Study
  Country: US (occurrence: US)
  Receive Date: 20250313
  Receipt Date: 20250809
  Transmission Date: 20251020
  Serious: Yes (Hospitalization, Other)
  Sender: ALEXION PHARMACEUTICALS
  Company Number: US-AstraZeneca-CH-00825247A

PATIENT
  Sex: Male

DRUGS (2)
  1. SOLIRIS [Suspect]
     Active Substance: ECULIZUMAB
     Indication: Atypical haemolytic uraemic syndrome
     Dosage: UNK, 2 TIMES A WEEK
     Route: 065
     Dates: start: 202301
  2. HEPARIN [Concomitant]
     Active Substance: HEPARIN SODIUM
     Route: 065

REACTIONS (6)
  - Aortic stenosis [Unknown]
  - Hypervolaemia [Unknown]
  - Device deposit issue [Unknown]
  - Pseudomonas infection [Unknown]
  - Coronary artery occlusion [Unknown]
  - Renal failure [Unknown]
